FAERS Safety Report 6931976-6 (Version None)
Quarter: 2010Q3

REPORT INFORMATION
  Report Type: 
  Country: None (occurrence: None)
  Receive Date: 20100812
  Receipt Date: 20090305
  Transmission Date: 20110219
  Serious: No
  Sender: FDA-Public Use
  Company Number: 2009-01070

PATIENT
  Age: 71 Year
  Sex: Male
  Weight: 86.1834 kg

DRUGS (3)
  1. ZICAM COLD REMEDY NASAL GEL [Suspect]
     Dosage: Q 4 HOURS X 1 WEEK
     Dates: start: 20090222, end: 20090301
  2. LOPRESSOR [Concomitant]
  3. MULTI-VITAMIN [Concomitant]

REACTIONS (1)
  - ANOSMIA [None]
